FAERS Safety Report 4845017-8 (Version None)
Quarter: 2005Q4

REPORT INFORMATION
  Report Type: 
  Country: None (occurrence: None)
  Receive Date: 20051205
  Receipt Date: 20051123
  Transmission Date: 20060501
  Serious: Yes (Hospitalization, Other)
  Sender: FDA-Public Use
  Company Number: US-MERCK-0511USA04250

PATIENT
  Age: 64 Year
  Sex: Female

DRUGS (9)
  1. VIOXX [Suspect]
     Indication: ARTHRALGIA
     Route: 048
     Dates: start: 20020416, end: 20040314
  2. VIOXX [Suspect]
     Route: 048
     Dates: start: 20020416, end: 20040314
  3. ACTIVELLA [Concomitant]
     Route: 065
  4. HUMULIN R [Concomitant]
     Route: 065
  5. CARTIA XT [Concomitant]
     Route: 065
  6. HYDROCHLOROTHIAZIDE AND TRIAMTERENE [Concomitant]
     Route: 065
  7. ZOCOR [Concomitant]
     Route: 065
  8. ALTACE [Concomitant]
     Route: 065
  9. ZITHROMAX [Concomitant]
     Route: 065

REACTIONS (3)
  - JOINT INJURY [None]
  - MYOCARDIAL INFARCTION [None]
  - TRIGGER FINGER [None]
